FAERS Safety Report 16919589 (Version 1)
Quarter: 2019Q4

REPORT INFORMATION
  Report Type: Spontaneous
  Country: US (occurrence: US)
  Receive Date: 20191015
  Receipt Date: 20191015
  Transmission Date: 20200122
  Serious: Yes (Other)
  Sender: FDA-Public Use
  Company Number: US-BAYER-2019-181580

PATIENT
  Age: 94 Year
  Sex: Male
  Weight: 61 kg

DRUGS (2)
  1. PRESERVISION [Concomitant]
     Active Substance: MINERALS\VITAMINS
     Dosage: 2 DF, QD
  2. MIRALAX [Suspect]
     Active Substance: POLYETHYLENE GLYCOL 3350
     Indication: CONSTIPATION
     Dosage: 1 DF, QD
     Route: 048
     Dates: start: 2019

REACTIONS (5)
  - Macular degeneration [None]
  - Constipation [None]
  - Product use in unapproved indication [Unknown]
  - Drug ineffective for unapproved indication [None]
  - Off label use [Unknown]

NARRATIVE: CASE EVENT DATE: 2019
